FAERS Safety Report 5471766-7 (Version None)
Quarter: 2007Q3

REPORT INFORMATION
  Report Type: 
  Country: None (occurrence: None)
  Receive Date: 20070928
  Receipt Date: 20070615
  Transmission Date: 20080115
  Serious: Yes (Other)
  Sender: FDA-Public Use
  Company Number: US-BRISTOL-MYERS SQUIBB COMPANY-13778352

PATIENT
  Age: 41 Year
  Sex: Male
  Weight: 136 kg

DRUGS (7)
  1. DEFINITY [Suspect]
     Indication: ULTRASOUND SCAN
     Dosage: 1.3 ML ACTIVATED DEFINITY; 8.7 ML SALINE/10CC SYRINGE
     Route: 040
     Dates: start: 20070511
  2. SODIUM CHLORIDE 0.9% [Suspect]
     Indication: ULTRASOUND SCAN
     Route: 040
     Dates: start: 20070511
  3. LIPITOR [Concomitant]
  4. DIOVAN [Concomitant]
  5. TOPROL-XL [Concomitant]
  6. ASPIRIN [Concomitant]
  7. LASIX [Concomitant]

REACTIONS (1)
  - CHEST PAIN [None]
